FAERS Safety Report 25063794 (Version 1)
Quarter: 2025Q1

REPORT INFORMATION
  Report Type: Spontaneous
  Country: US (occurrence: US)
  Receive Date: 20250311
  Receipt Date: 20250311
  Transmission Date: 20250409
  Serious: Yes (Hospitalization, Other)
  Sender: CHEPLAPHARM
  Company Number: US-BAUSCH-BL-2025-002817

PATIENT
  Age: 2 Decade
  Sex: Female

DRUGS (12)
  1. BUDESONIDE [Suspect]
     Active Substance: BUDESONIDE
     Indication: Asthma
     Route: 055
  2. PREDNISONE [Suspect]
     Active Substance: PREDNISONE
     Indication: Asthma
  3. ALBUTEROL SULFATE [Suspect]
     Active Substance: ALBUTEROL SULFATE
     Indication: Asthma
     Route: 055
  4. FORMOTEROL [Suspect]
     Active Substance: FORMOTEROL
     Indication: Asthma
     Route: 055
  5. FLUTICASONE FUROATE\UMECLIDINIUM BROMIDE\VILANTEROL TRIFENATATE [Suspect]
     Active Substance: FLUTICASONE FUROATE\UMECLIDINIUM BROMIDE\VILANTEROL TRIFENATATE
     Indication: Asthma
     Dosage: FLUTICASONE FUROATE 200 MCG/UMECLIDINIUM 62.5 MCG/VILANTEROL 25 MCG, ONCE PER DAY?INHALATION POWDER
     Route: 055
  6. CETIRIZINE [Suspect]
     Active Substance: CETIRIZINE HYDROCHLORIDE
     Indication: Asthma
     Dosage: DAILY DOSE: 10 MILLIGRAM
  7. ALBUTEROL\IPRATROPIUM [Suspect]
     Active Substance: ALBUTEROL\IPRATROPIUM
  8. METHYLPREDNISOLONE [Suspect]
     Active Substance: METHYLPREDNISOLONE
  9. MAGNESIUM SULFATE [Suspect]
     Active Substance: MAGNESIUM SULFATE
  10. FAMOTIDINE [Suspect]
     Active Substance: FAMOTIDINE
     Indication: Asthma
  11. MONTELUKAST [Suspect]
     Active Substance: MONTELUKAST
     Indication: Asthma
  12. HYDROCORTISONE [Concomitant]
     Active Substance: HYDROCORTISONE
     Indication: Adrenocortical steroid therapy

REACTIONS (8)
  - Treatment noncompliance [Unknown]
  - Maternal exposure during pregnancy [Recovered/Resolved]
  - Respiratory failure [Unknown]
  - Anxiety [Unknown]
  - Lactic acidosis [Recovered/Resolved]
  - Cerebral haemorrhage [Unknown]
  - Pneumothorax spontaneous [Recovered/Resolved]
  - Caesarean section [Recovered/Resolved]
